FAERS Safety Report 9660384 (Version 2)
Quarter: 2013Q4

REPORT INFORMATION
  Report Type: Spontaneous
  Country: NZ (occurrence: NZ)
  Receive Date: 20131031
  Receipt Date: 20131031
  Transmission Date: 20140711
  Serious: No
  Sender: FDA-Public Use
  Company Number: NZ-PURDUE-USA-2011-0071811

PATIENT
  Sex: Female

DRUGS (2)
  1. OXYCONTIN TABLETS [Suspect]
     Indication: CANCER PAIN
     Dosage: 160 MG, UNK
     Route: 048
  2. OXYNORM [Concomitant]
     Indication: CANCER PAIN
     Dosage: 10 MG, PRN

REACTIONS (1)
  - Vomiting [Recovered/Resolved]
